FAERS Safety Report 7712143-5 (Version None)
Quarter: 2011Q3

REPORT INFORMATION
  Report Type: 
  Country: None (occurrence: None)
  Receive Date: 20110822
  Receipt Date: 20110815
  Transmission Date: 20111222
  Serious: Yes (Other)
  Sender: FDA-Public Use
  Company Number: WAES 1002USA02637

PATIENT
  Age: 72 Year
  Sex: Male
  Weight: 95.709 kg

DRUGS (13)
  1. VASOTEC [Concomitant]
  2. PLACEBO [Suspect]
     Indication: ACUTE CORONARY SYNDROME
     Dosage: PO ; PO
     Route: 048
     Dates: start: 20060410
  3. PLACEBO [Suspect]
     Indication: ACUTE CORONARY SYNDROME
     Dosage: PO ; PO
     Route: 048
     Dates: start: 20060410
  4. LANTUS [Concomitant]
  5. ADVAIR DISKUS 100/50 [Concomitant]
  6. HUMALOG [Concomitant]
  7. ZOLOFT [Concomitant]
  8. ALBUTEROL SULFATE AUTOHALER [Concomitant]
  9. VYTORIN [Suspect]
     Indication: ACUTE CORONARY SYNDROME
     Dosage: 10-40 MG/DAILY/PO
     Route: 048
     Dates: start: 20060410
  10. COMBIVENT [Concomitant]
  11. ASPIRIN [Concomitant]
  12. MAGNESIUM (UNSPECIFIED) [Concomitant]
  13. METOPROLOL TARTRATE [Concomitant]

REACTIONS (2)
  - PROSTATE CANCER [None]
  - CARDIAC FAILURE [None]
